FAERS Safety Report 4959117-5 (Version None)
Quarter: 2006Q1

REPORT INFORMATION
  Report Type: 
  Country: None (occurrence: None)
  Receive Date: 20060330
  Receipt Date: 20060330
  Transmission Date: 20060701
  Serious: Yes (Other)
  Sender: FDA-Public Use
  Company Number: None

PATIENT
  Age: 2 Month
  Sex: Male

DRUGS (1)
  1. SYNAGIS [Suspect]
     Dosage: IM / (L) OUT THIGH
     Route: 030

REACTIONS (4)
  - DIARRHOEA [None]
  - IRRITABILITY [None]
  - NASAL CONGESTION [None]
  - VOMITING [None]
